FAERS Safety Report 6863611-X (Version None)
Quarter: 2010Q3

REPORT INFORMATION
  Report Type: 
  Country: None (occurrence: None)
  Receive Date: 20100720
  Receipt Date: 20100713
  Transmission Date: 20110219
  Serious: Yes (Other)
  Sender: FDA-Public Use
  Company Number: RB-13062-2010

PATIENT
  Sex: Female

DRUGS (3)
  1. SUBOXONE [Suspect]
     Indication: DRUG DEPENDENCE
     Dosage: (8 MG BID; SUBLINGUAL)
     Route: 060
     Dates: start: 20080801, end: 20100101
  2. SUBUTEX [Suspect]
     Indication: DRUG DEPENDENCE
     Dosage: (8 MG BID;  SUBLINGUAL), (4 MG TID SUBLINGUAL)
     Dates: start: 20080101, end: 20100701
  3. SUBUTEX [Suspect]
     Indication: DRUG DEPENDENCE
     Dosage: (8 MG BID;  SUBLINGUAL), (4 MG TID SUBLINGUAL)
     Dates: start: 20100701

REACTIONS (3)
  - DRUG EXPOSURE DURING PREGNANCY [None]
  - PREGNANCY [None]
  - PREMATURE LABOUR [None]
